FAERS Safety Report 4645203-6 (Version None)
Quarter: 2005Q2

REPORT INFORMATION
  Report Type: 
  Country: None (occurrence: None)
  Receive Date: 20050426
  Receipt Date: 20050419
  Transmission Date: 20051028
  Serious: Yes (Hospitalization)
  Sender: FDA-Public Use
  Company Number: US-GLAXOSMITHKLINE-A0554919A

PATIENT
  Age: 67 Year
  Sex: Female

DRUGS (7)
  1. TOPOTECAN [Suspect]
     Dosage: 4MGM2 CYCLIC
     Route: 042
     Dates: end: 20050412
  2. INSULIN [Concomitant]
  3. SYNTHROID [Concomitant]
  4. ALUMINUM HYDROXIDE AND MAGNESIUM TRISILICATE [Concomitant]
  5. METOPROLOL TARTRATE [Concomitant]
  6. ASPIRIN [Concomitant]
  7. NITROGLYCERIN [Concomitant]

REACTIONS (16)
  - ABDOMINAL DISTENSION [None]
  - ABDOMINAL PAIN UPPER [None]
  - ALOPECIA [None]
  - BACK PAIN [None]
  - CHEST PAIN [None]
  - CONSTIPATION [None]
  - DIARRHOEA [None]
  - DYSGEUSIA [None]
  - DYSPEPSIA [None]
  - HAEMOGLOBIN DECREASED [None]
  - NAUSEA [None]
  - NEUTROPHIL COUNT DECREASED [None]
  - PYELONEPHRITIS [None]
  - PYREXIA [None]
  - VOMITING [None]
  - WHITE BLOOD CELL COUNT DECREASED [None]
